FAERS Safety Report 12206305 (Version 2)
Quarter: 2016Q2

REPORT INFORMATION
  Report Type: Spontaneous
  Country: US (occurrence: US)
  Receive Date: 20160324
  Receipt Date: 20160420
  Transmission Date: 20160815
  Serious: Yes (Death, Hospitalization, Other)
  Sender: FDA-Public Use
  Company Number: US-009507513-1603USA010682

PATIENT
  Age: 68 Year
  Sex: Female

DRUGS (1)
  1. KEYTRUDA [Suspect]
     Active Substance: PEMBROLIZUMAB
     Indication: ENDOMETRIAL CANCER
     Dosage: 152 MG /EVERY 21 DAYS
     Route: 042
     Dates: start: 20160304

REACTIONS (5)
  - Acute kidney injury [Not Recovered/Not Resolved]
  - Malignant neoplasm progression [Fatal]
  - Sepsis [Not Recovered/Not Resolved]
  - Product use issue [Unknown]
  - Device occlusion [Not Recovered/Not Resolved]

NARRATIVE: CASE EVENT DATE: 201603
